FAERS Safety Report 20359214 (Version 1)
Quarter: 2022Q1

REPORT INFORMATION
  Report Type: Spontaneous
  Country: DE (occurrence: DE)
  Receive Date: 20220121
  Receipt Date: 20220121
  Transmission Date: 20220424
  Serious: Yes (Other)
  Sender: FDA-Public Use
  Company Number: DE-EMA-DD-20220105-singh_p11-155203

PATIENT
  Age: 14 Year
  Sex: Male

DRUGS (2)
  1. IMATINIB [Suspect]
     Active Substance: IMATINIB
     Indication: Chronic myeloid leukaemia
     Dosage: REQUIRED SEVERAL INTERRUPTIONS AND DOSE MODIFICATIONS DUE TO HEMATOLOGIC TOXICITY
     Route: 065
  2. PRIORIX [Concomitant]
     Active Substance: MEASLES-MUMPS-RUBELLA VIRUS VACCINE
     Indication: Measles immunisation
     Route: 030

REACTIONS (2)
  - Haematotoxicity [Recovered/Resolved]
  - Drug ineffective [Unknown]
